FAERS Safety Report 17946266 (Version 1)
Quarter: 2020Q2

REPORT INFORMATION
  Report Type: Spontaneous
  Country: US (occurrence: US)
  Receive Date: 20200625
  Receipt Date: 20200625
  Transmission Date: 20200714
  Serious: No
  Sender: FDA-Public Use
  Company Number: US-VIRTUS PHARMACEUTICALS, LLC-2019VTS00049

PATIENT
  Age: 53 Year
  Sex: Female
  Weight: 85.26 kg

DRUGS (7)
  1. IMVEXXY [Suspect]
     Active Substance: ESTRADIOL
     Indication: VULVOVAGINAL DRYNESS
     Dosage: 1 DOSAGE UNITS, 2X/WEEK AT BEDTIME
     Route: 067
     Dates: start: 201905, end: 20190616
  2. MULTIVITAMIN [Concomitant]
     Active Substance: VITAMINS
  3. SPIRULINA [Concomitant]
     Active Substance: SPIRULINA
  4. PROGESTERONE. [Suspect]
     Active Substance: PROGESTERONE
     Dosage: 1 DOSAGE UNITS, 1X/DAY AT NIGHT
     Dates: start: 20190421, end: 201907
  5. ESTRADIOL TRANSDERMAL SYSTEM [Suspect]
     Active Substance: ESTRADIOL
     Dosage: 1 PATCH, 2X/WEEK (KEPT PATCH ON AT ALL TIMES)
     Dates: start: 20190421, end: 201907
  6. IMVEXXY [Suspect]
     Active Substance: ESTRADIOL
     Indication: MENOPAUSAL SYMPTOMS
     Dosage: 1 DOSAGE UNITS, 1X/DAY AT BEDTIME
     Route: 067
     Dates: start: 20190421, end: 201905
  7. IMVEXXY [Suspect]
     Active Substance: ESTRADIOL
     Indication: HOT FLUSH

REACTIONS (7)
  - Paraesthesia oral [Recovering/Resolving]
  - Muscular weakness [Recovering/Resolving]
  - Swollen tongue [Recovered/Resolved]
  - White matter lesion [Not Recovered/Not Resolved]
  - Hypoaesthesia [Recovering/Resolving]
  - Feeling hot [Recovering/Resolving]
  - Hypoaesthesia oral [Recovering/Resolving]

NARRATIVE: CASE EVENT DATE: 201906
